FAERS Safety Report 6154860-7 (Version None)
Quarter: 2009Q2

REPORT INFORMATION
  Report Type: 
  Country: None (occurrence: None)
  Receive Date: 20090414
  Receipt Date: 20090402
  Transmission Date: 20091009
  Serious: Yes (Other)
  Sender: FDA-Public Use
  Company Number: JP-PFIZER INC-2009195333

PATIENT

DRUGS (1)
  1. XALATAN [Suspect]
     Route: 047

REACTIONS (2)
  - BLEPHARAL PIGMENTATION [None]
  - DISTICHIASIS [None]
